FAERS Safety Report 8870226 (Version 2)
Quarter: 2013Q1

REPORT INFORMATION
  Report Type: Spontaneous
  Country: US (occurrence: None)
  Receive Date: 20121024
  Receipt Date: 20121113
  Transmission Date: 20140127
  Serious: Yes (Other)
  Sender: FDA-Public Use
  Company Number: AUR-APL-2012-04493

PATIENT
  Age: 33 Year
  Sex: Female
  Weight: 51.7 kg

DRUGS (1)
  1. VENLAFAXINE [Suspect]
     Indication: DEPRESSION
     Dosage: (75 MG,2 IN 1 D)
     Dates: start: 201110

REACTIONS (5)
  - Drug ineffective [None]
  - Irritability [None]
  - Fatigue [None]
  - Depression [None]
  - Oropharyngeal pain [None]
